FAERS Safety Report 6880179-2 (Version None)
Quarter: 2010Q3

REPORT INFORMATION
  Report Type: 
  Country: None (occurrence: None)
  Receive Date: 20100728
  Receipt Date: 20100329
  Transmission Date: 20110219
  Serious: No
  Sender: FDA-Public Use
  Company Number: US-BRISTOL-MYERS SQUIBB COMPANY-15040769

PATIENT
  Age: 63 Year
  Sex: Male
  Weight: 86 kg

DRUGS (11)
  1. SPRYCEL [Suspect]
     Indication: CHRONIC MYELOID LEUKAEMIA
     Dates: start: 20091201
  2. TRAZODONE HCL [Suspect]
  3. LISINOPRIL [Concomitant]
  4. ALPRAZOLAM [Concomitant]
  5. FERROUS SULFATE [Concomitant]
  6. ZYLOPRIM [Concomitant]
  7. TRAMADOL HYDROCHLORIDE [Concomitant]
  8. PHENERGAN [Concomitant]
  9. METOPROLOL TARTRATE [Concomitant]
  10. PRILOSEC [Concomitant]
  11. RESTORIL [Concomitant]

REACTIONS (6)
  - BREAST MASS [None]
  - DECREASED APPETITE [None]
  - DIPLOPIA [None]
  - DISTURBANCE IN ATTENTION [None]
  - MEMORY IMPAIRMENT [None]
  - NIPPLE PAIN [None]
